FAERS Safety Report 17666918 (Version 1)
Quarter: 2020Q2

REPORT INFORMATION
  Report Type: Spontaneous
  Country: US (occurrence: US)
  Receive Date: 20200414
  Receipt Date: 20200414
  Transmission Date: 20200713
  Serious: No
  Sender: FDA-Public Use
  Company Number: US-BAYER-2020-061760

PATIENT
  Sex: Female

DRUGS (4)
  1. DIAZEPAM. [Concomitant]
     Active Substance: DIAZEPAM
     Dosage: 10 MG
  2. CITALOPRAM [Concomitant]
     Active Substance: CITALOPRAM HYDROBROMIDE
     Dosage: 20 MG
  3. BIOPERINE [BERBERINE HYDROCHLORIDE;ENTEROCOCCUS FAECALIS;ETHACRIDI [Concomitant]
     Indication: DEPRESSION
     Dosage: 300 MG
  4. ADEMPAS [Suspect]
     Active Substance: RIOCIGUAT
     Dosage: 0.5 MG, TID

REACTIONS (3)
  - Depressed mood [None]
  - Allergic sinusitis [None]
  - Insomnia [None]
